FAERS Safety Report 24019213 (Version 1)
Quarter: 2024Q2

REPORT INFORMATION
  Report Type: Spontaneous
  Country: US (occurrence: None)
  Receive Date: 20240626
  Receipt Date: 20240626
  Transmission Date: 20240716
  Serious: Yes (Death)
  Sender: FDA-Public Use
  Company Number: None

PATIENT
  Age: 71 Year
  Sex: Female

DRUGS (11)
  1. PRALUENT [Suspect]
     Active Substance: ALIROCUMAB
     Indication: Hypercholesterolaemia
     Dosage: OTHER FREQUENCY : EVERY 2 WEEKS;?
     Route: 058
     Dates: start: 20230419, end: 20240624
  2. ALBUTEROL METERED DOSE INHALER [Concomitant]
  3. ALPRAZOLAM [Concomitant]
     Active Substance: ALPRAZOLAM
  4. BACLOFEN [Concomitant]
     Active Substance: BACLOFEN
  5. BREZTRI METERED DOSE INHALER [Concomitant]
  6. ESTRADIOL [Concomitant]
     Active Substance: ESTRADIOL
  7. PRIMIDONE [Concomitant]
     Active Substance: PRIMIDONE
  8. TOPIRAMATE [Concomitant]
     Active Substance: TOPIRAMATE
  9. TRAMADOL [Concomitant]
     Active Substance: TRAMADOL\TRAMADOL HYDROCHLORIDE
  10. MOMETASONE [Concomitant]
     Active Substance: MOMETASONE
  11. LANSOPRAZOLE [Concomitant]
     Active Substance: LANSOPRAZOLE

REACTIONS (1)
  - Death [None]

NARRATIVE: CASE EVENT DATE: 20240624
